FAERS Safety Report 13400049 (Version 1)
Quarter: 2017Q2

REPORT INFORMATION
  Report Type: Other
  Country: ES (occurrence: ES)
  Receive Date: 20170404
  Receipt Date: 20170404
  Transmission Date: 20170830
  Serious: Yes (Hospitalization)
  Sender: FDA-Public Use
  Company Number: ES-APOTEX-2017AP009931

PATIENT
  Age: 70 Year
  Sex: Female

DRUGS (6)
  1. PAROXETINA APOTEX COMPRIMIDOS [Suspect]
     Active Substance: PAROXETINE HYDROCHLORIDE
     Indication: ACUTE PSYCHOSIS
     Dosage: 40 MG, QD
     Route: 048
     Dates: start: 2004
  2. DISTRANEURINE /00027501/ [Interacting]
     Active Substance: CLOMETHIAZOLE
     Indication: AGITATION
     Dosage: 576 MG, QD
     Route: 048
     Dates: start: 201601, end: 201601
  3. PLENUR                             /00033702/ [Interacting]
     Active Substance: LITHIUM CARBONATE
     Indication: BIPOLAR DISORDER
     Dosage: 800 MG, QD
     Route: 048
     Dates: end: 20160114
  4. LORMETAZEPAM [Interacting]
     Active Substance: LORMETAZEPAM
     Indication: INSOMNIA
     Dosage: 1 MG, QD
     Route: 048
     Dates: start: 201512, end: 20160114
  5. CO-DIOVAN [Concomitant]
     Active Substance: HYDROCHLOROTHIAZIDE\VALSARTAN
     Indication: HYPERTENSION
     Dosage: UNK
     Route: 048
     Dates: start: 20151006
  6. DILTIAZEM HYDROCHLORIDE. [Concomitant]
     Active Substance: DILTIAZEM HYDROCHLORIDE
     Indication: HYPERTENSION
     Dosage: 120 MG, QD
     Route: 048
     Dates: start: 201512

REACTIONS (3)
  - Toxicity to various agents [Recovered/Resolved]
  - Confusional state [Recovered/Resolved]
  - Drug interaction [Unknown]

NARRATIVE: CASE EVENT DATE: 20160101
